FAERS Safety Report 7331793-1 (Version None)
Quarter: 2011Q1

REPORT INFORMATION
  Report Type: 
  Country: None (occurrence: None)
  Receive Date: 20110304
  Receipt Date: 20100208
  Transmission Date: 20110831
  Serious: Yes (Hospitalization, Other)
  Sender: FDA-Public Use
  Company Number: US-PFIZER INC-2009209397

PATIENT
  Sex: Male

DRUGS (3)
  1. AMOXICILLIN [Suspect]
     Indication: OROPHARYNGEAL PAIN
     Dosage: 500 MG, UNK
     Route: 048
     Dates: start: 20070917
  2. PHENYTOIN [Suspect]
     Dosage: 1 G, UNK
     Route: 041
     Dates: start: 20070901
  3. DILANTIN [Suspect]
     Indication: CONVULSION
     Dosage: EVERY NIGHT
     Route: 048
     Dates: start: 20070902

REACTIONS (1)
  - STEVENS-JOHNSON SYNDROME [None]
